FAERS Safety Report 7718051-8 (Version None)
Quarter: 2011Q3

REPORT INFORMATION
  Report Type: 
  Country: None (occurrence: None)
  Receive Date: 20110830
  Receipt Date: 20110616
  Transmission Date: 20111222
  Serious: Yes (Other)
  Sender: FDA-Public Use
  Company Number: US-AMGEN-USASP2011031139

PATIENT
  Age: 27 Year
  Sex: Female

DRUGS (2)
  1. IVIGLOB-EX [Concomitant]
  2. NPLATE [Suspect]
     Indication: IDIOPATHIC THROMBOCYTOPENIC PURPURA
     Dosage: 250 A?G, UNK
     Dates: start: 20100629, end: 20101220

REACTIONS (1)
  - DRUG INEFFECTIVE [None]
